FAERS Safety Report 5883393-8 (Version None)
Quarter: 2008Q3

REPORT INFORMATION
  Report Type: 
  Country: None (occurrence: None)
  Receive Date: 20080915
  Receipt Date: 20080811
  Transmission Date: 20090109
  Serious: No
  Sender: FDA-Public Use
  Company Number: US-BAYER-200826307NA

PATIENT
  Age: 77 Year
  Sex: Male

DRUGS (2)
  1. LEVITRA [Suspect]
     Indication: DRUG USE FOR UNKNOWN INDICATION
     Dosage: UNIT DOSE: 20 MG
     Route: 048
  2. LEVITRA [Suspect]
     Dosage: UNIT DOSE: 20 MG
     Route: 048

REACTIONS (2)
  - ADVERSE EVENT [None]
  - ERECTILE DYSFUNCTION [None]
